FAERS Safety Report 10102870 (Version 1)
Quarter: 2014Q2

REPORT INFORMATION
  Report Type: Spontaneous
  Country: US (occurrence: US)
  Receive Date: 20140424
  Receipt Date: 20140424
  Transmission Date: 20141212
  Serious: No
  Sender: FDA-Public Use
  Company Number: US-BRISTOL-MYERS SQUIBB COMPANY-19963727

PATIENT
  Age: 70 Year
  Sex: Female

DRUGS (10)
  1. ELIQUIS [Suspect]
     Dosage: 4 TO 5 MONTHS
     Dates: start: 2013
  2. AMLODIPINE [Suspect]
  3. CARVEDILOL [Suspect]
  4. ATORVASTATIN [Concomitant]
  5. GLYBURIDE [Concomitant]
  6. EXEMESTANE [Concomitant]
  7. JANUVIA [Concomitant]
  8. DIGOXIN [Concomitant]
  9. PANTOPRAZOLE [Concomitant]
  10. XANAX [Concomitant]

REACTIONS (2)
  - Rash pruritic [Not Recovered/Not Resolved]
  - Feeling cold [Unknown]
